FAERS Safety Report 25332244 (Version 1)
Quarter: 2025Q2

REPORT INFORMATION
  Report Type: Spontaneous
  Country: PK (occurrence: PK)
  Receive Date: 20250519
  Receipt Date: 20250519
  Transmission Date: 20250717
  Serious: Yes (Other)
  Sender: PFIZER
  Company Number: PK-PFIZER INC-202500103481

PATIENT
  Age: 32 Year
  Sex: Male
  Weight: 76.4 kg

DRUGS (1)
  1. METHOTREXATE SODIUM [Suspect]
     Active Substance: METHOTREXATE SODIUM

REACTIONS (2)
  - Scleritis [Unknown]
  - Alanine aminotransferase increased [Unknown]
